FAERS Safety Report 5264585-8 (Version None)
Quarter: 2007Q1

REPORT INFORMATION
  Report Type: 
  Country: None (occurrence: None)
  Receive Date: 20070314
  Receipt Date: 20070308
  Transmission Date: 20070707
  Serious: Yes (Hospitalization)
  Sender: FDA-Public Use
  Company Number: 2007UW04639

PATIENT
  Age: 31 Year
  Sex: Male

DRUGS (6)
  1. CRESTOR [Suspect]
     Route: 048
  2. DIOVAN HCT [Concomitant]
     Dosage: 160/25
  3. PROPECIA [Concomitant]
  4. ROGAINE [Concomitant]
  5. CELEXA [Concomitant]
  6. ACIPHEX [Concomitant]

REACTIONS (3)
  - BLOOD CREATINE PHOSPHOKINASE INCREASED [None]
  - HYPOKALAEMIA [None]
  - MYALGIA [None]
